FAERS Safety Report 5123144-8 (Version None)
Quarter: 2006Q4

REPORT INFORMATION
  Report Type: 
  Country: None (occurrence: None)
  Receive Date: 20061009
  Receipt Date: 20060907
  Transmission Date: 20070319
  Serious: Yes (Other)
  Sender: FDA-Public Use
  Company Number: US-ROCHE-462611

PATIENT
  Age: 52 Year
  Sex: Female

DRUGS (2)
  1. PEGASYS [Suspect]
     Dosage: ROUTE OF ADMINISTRATION REPORTED AS INJ.
     Route: 050
     Dates: start: 20050909, end: 20060803
  2. RIBAVIRIN [Suspect]
     Route: 048
     Dates: start: 20050909, end: 20060803

REACTIONS (1)
  - DEEP VEIN THROMBOSIS [None]
